FAERS Safety Report 9171061 (Version 1)
Quarter: 2013Q1

REPORT INFORMATION
  Report Type: Spontaneous
  Country: US (occurrence: None)
  Receive Date: 20130311
  Receipt Date: 20130311
  Transmission Date: 20140127
  Serious: Yes (Other)
  Sender: FDA-Public Use
  Company Number: ACO_34648_2013

PATIENT
  Sex: Female
  Weight: 70.3 kg

DRUGS (5)
  1. AMPYRA [Suspect]
     Indication: PRODUCT USED FOR UNKNOWN INDICATION
     Dates: start: 20130102, end: 2013
  2. VITAMIN A (RETINOL) [Concomitant]
  3. VITAMIN D (ERGOCALCIFEROOL) [Concomitant]
  4. VITAMIN C [Concomitant]
  5. VITAMIN E (TOCOPHERYL ACETATE) [Concomitant]

REACTIONS (1)
  - Convulsion [None]
